FAERS Safety Report 4894750-0 (Version None)
Quarter: 2006Q1

REPORT INFORMATION
  Report Type: 
  Country: None (occurrence: None)
  Receive Date: 20060126
  Receipt Date: 20060126
  Transmission Date: 20060701
  Serious: Yes (Hospitalization, Disabling, Other)
  Sender: FDA-Public Use
  Company Number: None

PATIENT
  Age: 40 Year
  Sex: Female
  Weight: 65.7716 kg

DRUGS (4)
  1. CLINDAMYCIN [Suspect]
     Indication: ARTHRITIS INFECTIVE
     Dosage: 300 MG 3 TIMES PER DAY PO
     Route: 048
     Dates: start: 20051201, end: 20060104
  2. CLINDAMYCIN [Suspect]
     Indication: GINGIVAL INFECTION
     Dosage: 300 MG 3 TIMES PER DAY PO
     Route: 048
     Dates: start: 20051201, end: 20060104
  3. CLINDAMYCIN [Suspect]
     Indication: JAW DISORDER
     Dosage: 300 MG 3 TIMES PER DAY PO
     Route: 048
     Dates: start: 20051201, end: 20060104
  4. CLINDAMYCIN [Suspect]
     Indication: TOOTH INFECTION
     Dosage: 300 MG 3 TIMES PER DAY PO
     Route: 048
     Dates: start: 20051201, end: 20060104

REACTIONS (8)
  - ABASIA [None]
  - ABDOMINAL PAIN [None]
  - ANTIBODY TEST ABNORMAL [None]
  - BLOOD POTASSIUM DECREASED [None]
  - CLOSTRIDIUM COLITIS [None]
  - DIARRHOEA HAEMORRHAGIC [None]
  - HYPOTENSION [None]
  - VERTIGO [None]
